FAERS Safety Report 4404725-3 (Version None)
Quarter: 2004Q3

REPORT INFORMATION
  Report Type: 
  Country: None (occurrence: None)
  Receive Date: 20040720
  Receipt Date: 20040708
  Transmission Date: 20050211
  Serious: Yes (Hospitalization)
  Sender: FDA-Public Use
  Company Number: 2004222717AT

PATIENT
  Age: 79 Year
  Sex: Female
  Weight: 82 kg

DRUGS (6)
  1. AROMASIN [Suspect]
     Dosage: 25 MG, QD, ORAL
     Route: 048
     Dates: start: 20020221
  2. LAEVOLAC [Concomitant]
  3. CRATAEGUTT (CRATAEGUS EXTRACT) [Concomitant]
  4. LEXOTANIL [Concomitant]
  5. TRAZODONE HCL [Concomitant]
  6. ARIMIDEX [Concomitant]

REACTIONS (1)
  - ENDOMETRIAL HYPERPLASIA [None]
